FAERS Safety Report 18038081 (Version 3)
Quarter: 2020Q3

REPORT INFORMATION
  Report Type: Spontaneous
  Country: US (occurrence: US)
  Receive Date: 20200717
  Receipt Date: 20200803
  Transmission Date: 20201103
  Serious: Yes (Other)
  Sender: FDA-Public Use
  Company Number: US-CELGENEUS-USA-20200702828

PATIENT
  Sex: Female

DRUGS (3)
  1. REVLIMID [Suspect]
     Active Substance: LENALIDOMIDE
     Dosage: 10 MILLIGRAM
     Route: 048
     Dates: start: 20200511
  2. REVLIMID [Suspect]
     Active Substance: LENALIDOMIDE
     Dosage: 15 MILLIGRAM
     Route: 048
     Dates: start: 20200417
  3. REVLIMID [Suspect]
     Active Substance: LENALIDOMIDE
     Indication: PRODUCT USED FOR UNKNOWN INDICATION
     Dosage: 20 MILLIGRAM
     Route: 048
     Dates: start: 20191223

REACTIONS (10)
  - Arthralgia [Unknown]
  - Neuropathy peripheral [Unknown]
  - Urinary incontinence [Unknown]
  - Diarrhoea [Unknown]
  - Constipation [Unknown]
  - Cognitive disorder [Unknown]
  - Ageusia [Unknown]
  - Chills [Unknown]
  - Disease progression [Unknown]
  - Muscle spasms [Unknown]
